FAERS Safety Report 4523462-8 (Version None)
Quarter: 2004Q4

REPORT INFORMATION
  Report Type: 
  Country: None (occurrence: None)
  Receive Date: 20041117
  Receipt Date: 20040726
  Transmission Date: 20050328
  Serious: Yes (Hospitalization)
  Sender: FDA-Public Use
  Company Number: DE-JNJFOC-20040707364

PATIENT
  Age: 67 Year
  Sex: Female

DRUGS (14)
  1. LEVOFLOXACIN [Suspect]
     Indication: PNEUMONIA
     Dosage: INTRAVENOUS
     Route: 042
     Dates: start: 20030306, end: 20030313
  2. TUSSINEX (TUSSIONEX ^LABQUIFAR^ [Concomitant]
  3. LASIX [Concomitant]
  4. AMARYL [Concomitant]
  5. TESSALON [Concomitant]
  6. COLACE (DOCUSATE SODIUM) [Concomitant]
  7. SYNTHROID [Concomitant]
  8. LOVENOX [Concomitant]
  9. FORTAZ (CEFTAZIDIME) [Concomitant]
  10. SOLU-MEDROL [Concomitant]
  11. ALBUTEROL [Concomitant]
  12. ATROVENT [Concomitant]
  13. AVAPRO [Concomitant]
  14. CLINDAMYCIN (CLINDAMYCIN) [Concomitant]

REACTIONS (2)
  - HYPERTENSION [None]
  - HYPOXIA [None]
